FAERS Safety Report 19569377 (Version 2)
Quarter: 2021Q3

REPORT INFORMATION
  Report Type: Spontaneous
  Country: JP (occurrence: JP)
  Receive Date: 20210714
  Receipt Date: 20210729
  Transmission Date: 20211014
  Serious: Yes (Other)
  Sender: FDA-Public Use
  Company Number: NVSJ2021JP010533

PATIENT
  Sex: Male

DRUGS (1)
  1. COSENTYX [Suspect]
     Active Substance: SECUKINUMAB
     Indication: PUSTULAR PSORIASIS
     Dosage: 300 MG,UNK
     Route: 058
     Dates: start: 20200528, end: 202106

REACTIONS (5)
  - Feeling cold [Unknown]
  - Blood creatine phosphokinase increased [Unknown]
  - Hypothyroidism [Not Recovered/Not Resolved]
  - Joint range of motion decreased [Unknown]
  - Oral candidiasis [Recovered/Resolved]

NARRATIVE: CASE EVENT DATE: 202101
